FAERS Safety Report 25357019 (Version 1)
Quarter: 2025Q2

REPORT INFORMATION
  Report Type: Spontaneous
  Country: US (occurrence: US)
  Receive Date: 20250526
  Receipt Date: 20250526
  Transmission Date: 20250716
  Serious: No
  Sender: VANDA PHARMACEUTICALS
  Company Number: US-VANDA PHARMACEUTICALS, INC-2025ILOUS002014

PATIENT
  Sex: Female

DRUGS (1)
  1. FANAPT [Suspect]
     Active Substance: ILOPERIDONE
     Indication: Product used for unknown indication
     Route: 048

REACTIONS (8)
  - Influenza like illness [Unknown]
  - Blood pressure decreased [Unknown]
  - Vomiting [Unknown]
  - Nasal congestion [Unknown]
  - Dry mouth [Unknown]
  - Abdominal discomfort [Unknown]
  - Somnolence [Unknown]
  - Muscle spasms [Unknown]
